FAERS Safety Report 6989271-5 (Version None)
Quarter: 2010Q3

REPORT INFORMATION
  Report Type: 
  Country: None (occurrence: None)
  Receive Date: 20100916
  Receipt Date: 20091118
  Transmission Date: 20110219
  Serious: Yes (Other)
  Sender: FDA-Public Use
  Company Number: US-PFIZER INC-2009257481

PATIENT
  Age: 62 Year
  Sex: Female

DRUGS (9)
  1. LYRICA [Suspect]
     Indication: NEUROPATHY PERIPHERAL
     Dosage: 50 MG, 2X/DAY
  2. COLACE [Concomitant]
     Dosage: UNK
  3. DIGOXIN [Concomitant]
     Dosage: UNK
  4. DILTIAZEM [Concomitant]
     Dosage: UNK
  5. LORAZEPAM [Concomitant]
     Dosage: UNK
  6. OXYCODONE HCL [Concomitant]
     Dosage: UNK
  7. PHENERGAN [Concomitant]
     Dosage: UNK
  8. SERTRALINE [Concomitant]
     Dosage: UNK
  9. NEXIUM [Concomitant]
     Dosage: UNK

REACTIONS (2)
  - DYSPHAGIA [None]
  - UTERINE CANCER [None]
